FAERS Safety Report 24254139 (Version 1)
Quarter: 2024Q3

REPORT INFORMATION
  Report Type: Spontaneous
  Country: US (occurrence: US)
  Receive Date: 20240827
  Receipt Date: 20240827
  Transmission Date: 20241017
  Serious: Yes (Hospitalization, Other)
  Sender: MERCK
  Company Number: US-009507513-2408USA006840

PATIENT
  Sex: Male

DRUGS (2)
  1. WELIREG [Suspect]
     Active Substance: BELZUTIFAN
     Dosage: UNK
     Route: 048
     Dates: start: 20240501
  2. XARELTO [Concomitant]
     Active Substance: RIVAROXABAN

REACTIONS (5)
  - Urinary retention [Unknown]
  - Haemorrhage urinary tract [Unknown]
  - Oxygen saturation decreased [Not Recovered/Not Resolved]
  - Anaemia [Not Recovered/Not Resolved]
  - Drug ineffective [Unknown]

NARRATIVE: CASE EVENT DATE: 20240101
